FAERS Safety Report 13138381 (Version 1)
Quarter: 2017Q1

REPORT INFORMATION
  Report Type: Spontaneous
  Country: US (occurrence: US)
  Receive Date: 20170123
  Receipt Date: 20170123
  Transmission Date: 20170428
  Serious: Yes (Other)
  Sender: FDA-Public Use
  Company Number: None

PATIENT
  Age: 54 Year
  Sex: Female
  Weight: 81.72 kg

DRUGS (6)
  1. VITAMIN D [Concomitant]
     Active Substance: CHOLECALCIFEROL
  2. ESTER C [Concomitant]
  3. IMMUNE SUPPORT VITAMINS [Concomitant]
  4. SYMBICORT [Concomitant]
     Active Substance: BUDESONIDE\FORMOTEROL FUMARATE DIHYDRATE
  5. PRENISONE 10MG ROXANE LABS [Concomitant]
     Active Substance: PREDNISONE
  6. PROVENTIL HFA [Suspect]
     Active Substance: ALBUTEROL SULFATE
     Indication: ASTHMA
     Dosage: 200 PUFFS EVERY 4 HRS. AS NEEDED INHALE BY MOUTH
     Route: 048

REACTIONS (6)
  - Lip swelling [None]
  - Upper-airway cough syndrome [None]
  - Salivary hypersecretion [None]
  - Product packaging quantity issue [None]
  - Cheilitis [None]
  - Device malfunction [None]

NARRATIVE: CASE EVENT DATE: 20170105
